FAERS Safety Report 9586167 (Version 2)
Quarter: 2013Q4

REPORT INFORMATION
  Report Type: Report from Study
  Country: US (occurrence: US)
  Receive Date: 20131003
  Receipt Date: 20131017
  Transmission Date: 20140711
  Serious: Yes (Hospitalization)
  Sender: FDA-Public Use
  Company Number: US-JNJFOC-20130914750

PATIENT
  Age: 13 Year
  Sex: Male
  Weight: 39.6 kg

DRUGS (5)
  1. REMICADE [Suspect]
     Indication: INFLAMMATORY BOWEL DISEASE
     Route: 042
     Dates: start: 20120303, end: 20120303
  2. REMICADE [Suspect]
     Indication: INFLAMMATORY BOWEL DISEASE
     Route: 042
     Dates: start: 20120119
  3. HUMIRA [Concomitant]
     Route: 065
     Dates: start: 20130811
  4. HUMIRA [Concomitant]
     Route: 065
     Dates: start: 20120115
  5. MIRALAX [Concomitant]
     Dosage: AS NEEDED
     Route: 065

REACTIONS (2)
  - Lymphadenopathy [Recovered/Resolved]
  - Sialocele [Recovered/Resolved]
